FAERS Safety Report 20378749 (Version 1)
Quarter: 2022Q1

REPORT INFORMATION
  Report Type: Spontaneous
  Country: US (occurrence: US)
  Receive Date: 20220126
  Receipt Date: 20220126
  Transmission Date: 20220423
  Serious: No
  Sender: FDA-Public Use
  Company Number: US-PFIZER INC-2021543958

PATIENT
  Sex: Male

DRUGS (1)
  1. SOMAVERT [Suspect]
     Active Substance: PEGVISOMANT
     Dosage: UNK
     Route: 058
     Dates: start: 2010

REACTIONS (5)
  - Therapeutic product effect incomplete [Unknown]
  - Product dose omission issue [Unknown]
  - Injection site pain [Unknown]
  - Needle issue [Unknown]
  - Poor quality device used [Unknown]
